FAERS Safety Report 21239448 (Version 3)
Quarter: 2022Q3

REPORT INFORMATION
  Report Type: Spontaneous
  Country: US (occurrence: US)
  Receive Date: 20220822
  Receipt Date: 20220914
  Transmission Date: 20221027
  Serious: No
  Sender: FDA-Public Use
  Company Number: US-NOVARTISTESTPH-NVSC2022US186290

PATIENT
  Age: 54 Year
  Sex: Female

DRUGS (3)
  1. COMBIPATCH [Suspect]
     Active Substance: ESTRADIOL\NORETHINDRONE ACETATE
     Indication: Hot flush
     Dosage: UNK (0.05/0.25 MG) (EVERY 3-4 DAYS) (EVERY TUESDAY AND THURSDAY)
     Route: 065
     Dates: start: 2020
  2. COMBIPATCH [Suspect]
     Active Substance: ESTRADIOL\NORETHINDRONE ACETATE
     Dosage: UNK (0.05/0.25 MG) (EVERY 3-4 DAYS) (EVERY TUESDAY AND THURSDAY)
     Route: 062
     Dates: start: 2022
  3. COMBIPATCH [Suspect]
     Active Substance: ESTRADIOL\NORETHINDRONE ACETATE
     Dosage: UNK (0.05/0.25 MG) (EVERY 3-4 DAYS) (EVERY TUESDAY AND THURSDAY)
     Route: 062
     Dates: start: 20220811

REACTIONS (7)
  - Intermenstrual bleeding [Recovered/Resolved]
  - Product residue present [Recovered/Resolved]
  - Application site urticaria [Recovered/Resolved]
  - Application site rash [Recovered/Resolved]
  - Application site pruritus [Recovered/Resolved]
  - Application site irritation [Recovered/Resolved]
  - Application site erythema [Recovered/Resolved]

NARRATIVE: CASE EVENT DATE: 20200101
